FAERS Safety Report 7448161-4 (Version None)
Quarter: 2011Q2

REPORT INFORMATION
  Report Type: 
  Country: None (occurrence: None)
  Receive Date: 20110429
  Receipt Date: 20100415
  Transmission Date: 20111010
  Serious: No
  Sender: FDA-Public Use
  Company Number: US-ASTRAZENECA-2010SE09125

PATIENT
  Age: 54 Year
  Sex: Female

DRUGS (1)
  1. NEXIUM [Suspect]

REACTIONS (15)
  - HAEMORRHOIDS [None]
  - JOINT DISLOCATION [None]
  - BLOOD CREATININE INCREASED [None]
  - HAEMATOCHEZIA [None]
  - BRONCHITIS [None]
  - BLOOD UREA INCREASED [None]
  - TYPE 2 DIABETES MELLITUS [None]
  - HYPERTENSION [None]
  - WEIGHT DECREASED [None]
  - RENAL DISORDER [None]
  - RHINITIS ALLERGIC [None]
  - CONSTIPATION [None]
  - BLOOD UREA NITROGEN/CREATININE RATIO INCREASED [None]
  - GLUCOSE TOLERANCE IMPAIRED [None]
  - BLOOD ALKALINE PHOSPHATASE INCREASED [None]
